FAERS Safety Report 6739181-3 (Version None)
Quarter: 2010Q2

REPORT INFORMATION
  Report Type: 
  Country: None (occurrence: None)
  Receive Date: 20100525
  Receipt Date: 20100511
  Transmission Date: 20101027
  Serious: Yes (Other)
  Sender: FDA-Public Use
  Company Number: US-SOLVAY-00210003089

PATIENT
  Age: 18960 Day
  Sex: Female

DRUGS (3)
  1. CLIMARA [Suspect]
     Indication: OESTROGEN REPLACEMENT THERAPY
     Dosage: DAILY DOSE:  UNKNOWN
     Route: 062
     Dates: end: 20090316
  2. PREMARIN [Suspect]
     Indication: OESTROGEN REPLACEMENT THERAPY
     Dosage: DAILY DOSE:  UNKNOWN
     Route: 065
     Dates: end: 20090315
  3. PROMETRIUM [Suspect]
     Indication: OESTROGEN REPLACEMENT THERAPY
     Dosage: DAILY DOSE:  UNKNOWN; 200MG DAILY FOR THE FIRST 12 DAYS OF THE MONTH.
     Route: 065
     Dates: end: 20090312

REACTIONS (1)
  - MALIGNANT MELANOMA [None]
